FAERS Safety Report 19372691 (Version 1)
Quarter: 2021Q2

REPORT INFORMATION
  Report Type: Spontaneous
  Country: US (occurrence: US)
  Receive Date: 20210603
  Receipt Date: 20210603
  Transmission Date: 20210717
  Serious: No
  Sender: FDA-Public Use
  Company Number: None

PATIENT
  Age: 57 Year
  Sex: Male

DRUGS (1)
  1. IC HYDROCODONE 5/325 [Suspect]
     Active Substance: ACETAMINOPHEN\HYDROCODONE BITARTRATE
     Indication: BACK PAIN
     Dates: start: 20210601, end: 20210603

REACTIONS (3)
  - Acne [None]
  - Back pain [None]
  - Drug ineffective [None]

NARRATIVE: CASE EVENT DATE: 20210601
